FAERS Safety Report 5598171-7 (Version None)
Quarter: 2008Q1

REPORT INFORMATION
  Report Type: 
  Country: None (occurrence: None)
  Receive Date: 20080117
  Receipt Date: 20080117
  Transmission Date: 20080703
  Serious: No
  Sender: FDA-Public Use
  Company Number: None

PATIENT
  Age: 67 Year
  Sex: Male
  Weight: 85 kg

DRUGS (2)
  1. MIDAZOLAM HCL [Suspect]
     Indication: SEDATION
     Dosage: 3MG  ONCE  IV
     Route: 042
     Dates: start: 20071212, end: 20071212
  2. FENTANYL [Suspect]
     Indication: SEDATION
     Dosage: 75MCG  ONCE  IV
     Route: 042
     Dates: start: 20071212, end: 20071212

REACTIONS (4)
  - GAIT DISTURBANCE [None]
  - HYPOXIA [None]
  - OXYGEN SATURATION DECREASED [None]
  - SEDATION [None]
